FAERS Safety Report 6603667-2 (Version None)
Quarter: 2010Q1

REPORT INFORMATION
  Report Type: 
  Country: None (occurrence: None)
  Receive Date: 20100226
  Receipt Date: 20100217
  Transmission Date: 20100710
  Serious: Yes (Other)
  Sender: FDA-Public Use
  Company Number: US-JNJFOC-20100207131

PATIENT
  Age: 82 Year
  Sex: Female
  Weight: 63.5 kg

DRUGS (4)
  1. EXTRA STRENGTH TYLENOL [Suspect]
     Route: 048
  2. EXTRA STRENGTH TYLENOL [Suspect]
     Indication: PROCEDURAL PAIN
     Route: 048
  3. NEXIUM [Concomitant]
     Indication: GASTROOESOPHAGEAL REFLUX DISEASE
  4. ASPIRIN [Concomitant]
     Indication: PROPHYLAXIS

REACTIONS (7)
  - DIARRHOEA [None]
  - DIZZINESS [None]
  - FALL [None]
  - NAUSEA [None]
  - PRODUCT QUALITY ISSUE [None]
  - VOMITING [None]
  - WHEELCHAIR USER [None]
